FAERS Safety Report 21506258 (Version 11)
Quarter: 2025Q3

REPORT INFORMATION
  Report Type: Spontaneous
  Country: US (occurrence: US)
  Receive Date: 20221026
  Receipt Date: 20250721
  Transmission Date: 20251021
  Serious: No
  Sender: BIOGEN
  Company Number: US-BIOGEN-2022BI01164314

PATIENT
  Sex: Female

DRUGS (2)
  1. TYSABRI [Suspect]
     Active Substance: NATALIZUMAB
     Indication: Multiple sclerosis
     Route: 050
     Dates: start: 20120914, end: 20230111
  2. TYSABRI [Suspect]
     Active Substance: NATALIZUMAB
     Route: 050
     Dates: start: 20230404

REACTIONS (14)
  - Product dose omission issue [Not Recovered/Not Resolved]
  - Therapeutic response shortened [Unknown]
  - Stress [Not Recovered/Not Resolved]
  - Loss of control of legs [Unknown]
  - Hypotension [Unknown]
  - Mental fatigue [Unknown]
  - Eczema [Unknown]
  - Asthenia [Unknown]
  - Balance disorder [Unknown]
  - Hemianaesthesia [Unknown]
  - Hypoaesthesia [Unknown]
  - Muscle spasms [Unknown]
  - Hypertension [Unknown]
  - Fatigue [Unknown]
